FAERS Safety Report 24840739 (Version 1)
Quarter: 2025Q1

REPORT INFORMATION
  Report Type: Spontaneous
  Country: CA (occurrence: CA)
  Receive Date: 20250114
  Receipt Date: 20250114
  Transmission Date: 20250408
  Serious: Yes (Other)
  Sender: PFIZER
  Company Number: CA-PFIZER INC-202500006522

PATIENT
  Age: 69 Year
  Sex: Male

DRUGS (4)
  1. CIBINQO [Suspect]
     Active Substance: ABROCITINIB
     Indication: Dermatitis atopic
     Route: 048
     Dates: start: 20231110
  2. CIBINQO [Suspect]
     Active Substance: ABROCITINIB
     Dosage: 200 MG, 1X/DAY
     Route: 048
     Dates: start: 20240215, end: 2024
  3. CIBINQO [Suspect]
     Active Substance: ABROCITINIB
     Dosage: 200 MG, 1X/DAY
     Route: 048
     Dates: start: 2024
  4. COSENTYX [Concomitant]
     Active Substance: SECUKINUMAB

REACTIONS (1)
  - Crohn^s disease [Unknown]
